FAERS Safety Report 4627131-5 (Version None)
Quarter: 2005Q2

REPORT INFORMATION
  Report Type: 
  Country: None (occurrence: None)
  Receive Date: 20050405
  Receipt Date: 20050329
  Transmission Date: 20051028
  Serious: Yes (Hospitalization)
  Sender: FDA-Public Use
  Company Number: IT-ROCHE-399935

PATIENT
  Age: 61 Year
  Sex: Female
  Weight: 69.6 kg

DRUGS (3)
  1. PEG-INTERFERON ALFA 2A (RO 25-8310) [Suspect]
     Route: 058
     Dates: start: 20050113
  2. RIBAVIRIN [Suspect]
     Route: 048
     Dates: start: 20050113
  3. ENALAPRIL [Concomitant]
     Dates: start: 19940615

REACTIONS (4)
  - GASTRODUODENITIS [None]
  - GASTROOESOPHAGITIS [None]
  - MOUTH HAEMORRHAGE [None]
  - VARICOSE VEINS SUBLINGUAL [None]
